FAERS Safety Report 24660912 (Version 1)
Quarter: 2024Q4

REPORT INFORMATION
  Report Type: Spontaneous
  Country: US (occurrence: US)
  Receive Date: 20241125
  Receipt Date: 20241125
  Transmission Date: 20250115
  Serious: No
  Sender: AVADEL CNS PHARMACEUTICALS, LLC
  Company Number: US-AVADEL CNS PHARMACEUTICALS, LLC-2024AVA01860

PATIENT
  Sex: Female

DRUGS (15)
  1. LUMRYZ [Suspect]
     Active Substance: SODIUM OXYBATE
     Indication: Narcolepsy
     Dosage: 9 G
     Dates: start: 202406, end: 2024
  2. LUMRYZ [Suspect]
     Active Substance: SODIUM OXYBATE
     Indication: Cataplexy
  3. LUMRYZ [Suspect]
     Active Substance: SODIUM OXYBATE
     Indication: Narcolepsy
     Dosage: 7.5 G
     Dates: start: 2024
  4. LUMRYZ [Suspect]
     Active Substance: SODIUM OXYBATE
     Indication: Cataplexy
  5. ARIPIPRAZOLE [Concomitant]
     Active Substance: ARIPIPRAZOLE
  6. BENZTROPINE [Concomitant]
     Active Substance: BENZTROPINE
  7. CITALOPRAM [Concomitant]
     Active Substance: CITALOPRAM
  8. GABAPENTIN [Concomitant]
     Active Substance: GABAPENTIN
  9. KETOTIFEN [Concomitant]
     Active Substance: KETOTIFEN
  10. LOPERAMIDE [Concomitant]
     Active Substance: LOPERAMIDE
  11. MODAFINIL [Concomitant]
     Active Substance: MODAFINIL
  12. MONTELUKAST [Concomitant]
     Active Substance: MONTELUKAST
  13. OMEPRAZOLE [Concomitant]
     Active Substance: OMEPRAZOLE
  14. PROPRANOLOL [Concomitant]
     Active Substance: PROPRANOLOL HYDROCHLORIDE
  15. TRANEXAMIC ACID [Concomitant]
     Active Substance: TRANEXAMIC ACID

REACTIONS (1)
  - Tremor [Unknown]

NARRATIVE: CASE EVENT DATE: 20240101
